FAERS Safety Report 20501650 (Version 3)
Quarter: 2022Q2

REPORT INFORMATION
  Report Type: Spontaneous
  Country: US (occurrence: US)
  Receive Date: 20220222
  Receipt Date: 20220509
  Transmission Date: 20220721
  Serious: Yes (Other)
  Sender: FDA-Public Use
  Company Number: US-BAYER-2022A022083

PATIENT
  Age: 19 Year
  Sex: Female

DRUGS (18)
  1. LORATADINE [Suspect]
     Active Substance: LORATADINE
     Indication: Mast cell activation syndrome
  2. LORATADINE [Suspect]
     Active Substance: LORATADINE
     Indication: Mast cell activation syndrome
  3. DIPHENHYDRAMINE [Suspect]
     Active Substance: DIPHENHYDRAMINE
  4. FEXOFENADINE [Suspect]
     Active Substance: FEXOFENADINE HYDROCHLORIDE
  5. FAMOTIDINE [Suspect]
     Active Substance: FAMOTIDINE
  6. RANITIDINE [Suspect]
     Active Substance: RANITIDINE
  7. LEVOCETIRIZINE [Suspect]
     Active Substance: LEVOCETIRIZINE
  8. CETIRIZINE [Suspect]
     Active Substance: CETIRIZINE HYDROCHLORIDE
  9. CROMOLYN [Concomitant]
     Active Substance: CROMOLYN
  10. KETOTIFEN [Concomitant]
     Active Substance: KETOTIFEN
     Dosage: 2 MG, QD
  11. NALTREXONE [Concomitant]
     Active Substance: NALTREXONE
     Dosage: 3 MG, ONCE, QD
  12. IMATINIB [Concomitant]
     Active Substance: IMATINIB
     Dosage: 100 MG, ONCE, QD
  13. HYDROXYZINE [Concomitant]
     Active Substance: HYDROXYZINE HYDROCHLORIDE
  14. MONTELUKAST [Concomitant]
     Active Substance: MONTELUKAST SODIUM
  15. GLEEVEC [Concomitant]
     Active Substance: IMATINIB MESYLATE
  16. PRUCALOPRIDE [Concomitant]
     Active Substance: PRUCALOPRIDE
     Indication: Constipation
  17. IZ IVIG [Concomitant]
     Dosage: 2 GRAM PER KILOGRAM, TWO DAYS PER MONTH
  18. CELECOXIB [Concomitant]
     Active Substance: CELECOXIB
     Dosage: 100 MG, ONCE, QD

REACTIONS (7)
  - Mast cell activation syndrome [Unknown]
  - Condition aggravated [Unknown]
  - Drug intolerance [Recovered/Resolved]
  - Feeling abnormal [None]
  - Cerebral disorder [None]
  - Cognitive disorder [Recovering/Resolving]
  - Condition aggravated [Recovering/Resolving]
